FAERS Safety Report 8901849 (Version 1)
Quarter: 2012Q4

REPORT INFORMATION
  Report Type: Spontaneous
  Country: US (occurrence: None)
  Receive Date: 20121109
  Receipt Date: 20121109
  Transmission Date: 20130627
  Serious: Yes (Hospitalization)
  Sender: FDA-Public Use
  Company Number: None

PATIENT
  Age: 59 Year
  Sex: Female
  Weight: 95.9 kg

DRUGS (10)
  1. DAPTOMYCIN [Suspect]
     Indication: OSTEOMYELITIS BACTERIAL
     Dosage: 500 mg  q24h  iv
     Route: 042
     Dates: start: 20121003, end: 20121021
  2. CALCIUM CARBONATE [Concomitant]
  3. LANTUS [Concomitant]
  4. VICTOZA [Concomitant]
  5. METFORMIN [Concomitant]
  6. LEVOTHYROXINE [Concomitant]
  7. LISINOPRIL [Concomitant]
  8. POTASSIUM CHLORIDE [Concomitant]
  9. VITAMIN D3 [Concomitant]
  10. AZITHROMYCIN [Concomitant]

REACTIONS (1)
  - Eosinophilic pneumonia [None]
